FAERS Safety Report 10080321 (Version 2)
Quarter: 2014Q2

REPORT INFORMATION
  Report Type: Report from Study
  Country: CA (occurrence: CA)
  Receive Date: 20140415
  Receipt Date: 20140416
  Transmission Date: 20141212
  Serious: Yes (Death)
  Sender: FDA-Public Use
  Company Number: PHHY2014CA046082

PATIENT
  Sex: Female

DRUGS (5)
  1. ACLASTA [Suspect]
     Indication: OSTEOPOROSIS
     Dosage: 5 MG YEARLY
     Route: 042
     Dates: start: 20090422
  2. ACLASTA [Suspect]
     Dosage: 5 MG YEARLY
     Route: 042
     Dates: start: 20100407
  3. ACLASTA [Suspect]
     Dosage: 5 MG YEARLY
     Route: 042
     Dates: start: 20110418
  4. ACLASTA [Suspect]
     Dosage: 5 MG YEARLY
     Route: 042
     Dates: start: 20120410
  5. ACLASTA [Suspect]
     Dosage: 5 MG YEARLY
     Route: 042
     Dates: start: 20130424

REACTIONS (1)
  - Lung neoplasm malignant [Fatal]
